FAERS Safety Report 8588889-6 (Version None)
Quarter: 2012Q3

REPORT INFORMATION
  Report Type: 
  Country: None (occurrence: None)
  Receive Date: 20120813
  Receipt Date: 20120807
  Transmission Date: 20120928
  Serious: Yes (Life-Threatening, Other)
  Sender: FDA-Public Use
  Company Number: JP-PFIZER INC-2012191308

PATIENT
  Age: 82 Year
  Sex: Male

DRUGS (5)
  1. SEFTAC [Concomitant]
     Dosage: 150 MG, 1X/DAY
     Route: 048
     Dates: start: 20120313, end: 20120425
  2. TAMSULOSIN HCL [Concomitant]
     Dosage: 0.2 MG, 1X/DAY
     Route: 048
     Dates: start: 20120313, end: 20120425
  3. LYRICA [Suspect]
     Dosage: 150 MG, 1X/DAY
     Route: 048
     Dates: start: 20120313, end: 20120425
  4. LOXONIN [Concomitant]
     Dosage: 180 MG, 1X/DAY
     Route: 048
     Dates: start: 20120313, end: 20120425
  5. OPALMON [Concomitant]
     Dosage: 15 UG, 1X/DAY
     Route: 048
     Dates: start: 20120313, end: 20120425

REACTIONS (4)
  - LOSS OF CONSCIOUSNESS [None]
  - SOMNOLENCE [None]
  - AMNESIA [None]
  - ROAD TRAFFIC ACCIDENT [None]
